FAERS Safety Report 5932625-6 (Version None)
Quarter: 2008Q4

REPORT INFORMATION
  Report Type: 
  Country: None (occurrence: None)
  Receive Date: 20081028
  Receipt Date: 20081020
  Transmission Date: 20090506
  Serious: Yes (Hospitalization)
  Sender: FDA-Public Use
  Company Number: CA-AMGEN-QUU314740

PATIENT
  Age: 75 Year
  Sex: Male
  Weight: 58 kg

DRUGS (7)
  1. ENBREL [Suspect]
     Indication: DRUG USE FOR UNKNOWN INDICATION
     Route: 058
  2. ACEBUTOLOL HYDROCHLORIDE [Concomitant]
     Route: 048
  3. DOCUSATE SODIUM [Concomitant]
  4. FOSAMAX [Concomitant]
  5. NAPROXEN [Concomitant]
     Route: 048
  6. PREDNISONE TAB [Concomitant]
     Route: 048
  7. PREVACID [Concomitant]
     Route: 048

REACTIONS (5)
  - CANDIDIASIS [None]
  - DRUG INEFFECTIVE [None]
  - MALAISE [None]
  - RASH PUSTULAR [None]
  - STAPHYLOCOCCAL INFECTION [None]
